FAERS Safety Report 20343161 (Version 1)
Quarter: 2022Q1

REPORT INFORMATION
  Report Type: Spontaneous
  Country: US (occurrence: US)
  Receive Date: 20220117
  Receipt Date: 20220117
  Transmission Date: 20220423
  Serious: No
  Sender: FDA-Public Use
  Company Number: US-009507513-2201USA000682

PATIENT

DRUGS (1)
  1. ALBUTEROL SULFATE [Suspect]
     Active Substance: ALBUTEROL SULFATE
     Indication: Asthma
     Dosage: 2 PUFFS / 2 TIMES PER DAY

REACTIONS (4)
  - Asthma [Unknown]
  - Poor quality device used [Unknown]
  - Product delivery mechanism issue [Unknown]
  - Incorrect dose administered [Unknown]
